FAERS Safety Report 6448083-1 (Version None)
Quarter: 2009Q4

REPORT INFORMATION
  Report Type: 
  Country: None (occurrence: None)
  Receive Date: 20091120
  Receipt Date: 20091112
  Transmission Date: 20100525
  Serious: Yes (Other)
  Sender: FDA-Public Use
  Company Number: US-ROCHE-669601

PATIENT
  Sex: Female
  Weight: 1.3 kg

DRUGS (4)
  1. OSELTAMIVIR [Suspect]
     Indication: H1N1 INFLUENZA
     Dosage: ADMINISTERED FOR 10 DAYS
     Route: 064
  2. AMANTADINE [Concomitant]
  3. CEFEPIME [Concomitant]
  4. VANCOMYCIN [Concomitant]

REACTIONS (5)
  - FOETAL HEART RATE DECELERATION [None]
  - PREGNANCY [None]
  - PREMATURE LABOUR [None]
  - PREMATURE RUPTURE OF MEMBRANES [None]
  - SMALL FOR DATES BABY [None]
